FAERS Safety Report 8004442-7 (Version None)
Quarter: 2011Q4

REPORT INFORMATION
  Report Type: 
  Country: None (occurrence: None)
  Receive Date: 20111221
  Receipt Date: 20111221
  Transmission Date: 20120403
  Serious: No
  Sender: FDA-Public Use
  Company Number: None

PATIENT
  Age: 57 Year
  Sex: Female
  Weight: 90.7194 kg

DRUGS (1)
  1. SIMVASTATIN [Suspect]
     Indication: BLOOD CHOLESTEROL ABNORMAL
     Dosage: 80 MG ONCE DAILY SWALLOW
     Route: 048

REACTIONS (3)
  - MUSCLE SPASMS [None]
  - URINARY TRACT INFECTION [None]
  - ADVERSE DRUG REACTION [None]
